FAERS Safety Report 7289046-6 (Version None)
Quarter: 2011Q1

REPORT INFORMATION
  Report Type: 
  Country: None (occurrence: None)
  Receive Date: 20110211
  Receipt Date: 20110211
  Transmission Date: 20110831
  Serious: Yes (Other)
  Sender: FDA-Public Use
  Company Number: GB-ELI_LILLY_AND_COMPANY-GB201002004449

PATIENT
  Age: 66 Year
  Sex: Female

DRUGS (2)
  1. OLANZAPINE [Suspect]
     Dosage: UNK, DAILY (1/D)
     Route: 065
  2. EPILIM [Concomitant]
     Dosage: 2 G, DAILY (1/D)
     Route: 048

REACTIONS (4)
  - PARKINSON'S DISEASE [None]
  - CLUMSINESS [None]
  - COORDINATION ABNORMAL [None]
  - TREMOR [None]
